FAERS Safety Report 6255130-9 (Version None)
Quarter: 2009Q3

REPORT INFORMATION
  Report Type: 
  Country: None (occurrence: None)
  Receive Date: 20090702
  Receipt Date: 20090622
  Transmission Date: 20100115
  Serious: Yes (Other)
  Sender: FDA-Public Use
  Company Number: PHHY2009DK22820

PATIENT
  Sex: Female

DRUGS (1)
  1. FEMARA [Suspect]
     Dosage: UNK
     Route: 048
     Dates: start: 20090311, end: 20090610

REACTIONS (5)
  - ALOPECIA [None]
  - DIZZINESS [None]
  - MALAISE [None]
  - MUCOSAL DRYNESS [None]
  - VISUAL ACUITY REDUCED [None]
